FAERS Safety Report 18468290 (Version 3)
Quarter: 2020Q4

REPORT INFORMATION
  Report Type: Spontaneous
  Country: US (occurrence: US)
  Receive Date: 20201105
  Receipt Date: 20201215
  Transmission Date: 20210114
  Serious: No
  Sender: FDA-Public Use
  Company Number: US-PFIZER INC-2020428718

PATIENT
  Age: 66 Year
  Sex: Male

DRUGS (1)
  1. INLYTA [Suspect]
     Active Substance: AXITINIB
     Indication: RENAL CANCER
     Dosage: 5 MG, 2X/DAY

REACTIONS (5)
  - Hypertension [Unknown]
  - Product dose omission issue [Unknown]
  - Skin fissures [Unknown]
  - Pruritus [Not Recovered/Not Resolved]
  - Dry skin [Recovering/Resolving]
